FAERS Safety Report 5995345-8 (Version None)
Quarter: 2008Q4

REPORT INFORMATION
  Report Type: 
  Country: None (occurrence: None)
  Receive Date: 20081210
  Receipt Date: 20081202
  Transmission Date: 20090506
  Serious: Yes (Life-Threatening)
  Sender: FDA-Public Use
  Company Number: 100#08#2008-05789

PATIENT
  Age: 82 Year
  Sex: Female

DRUGS (3)
  1. METHOTREXATE [Suspect]
     Indication: RHEUMATOID ARTHRITIS
     Dosage: 15 MG WEEKLY
     Route: 058
  2. PREDNISONE [Concomitant]
  3. FOLIC ACID [Concomitant]

REACTIONS (11)
  - ASTHENIA [None]
  - CD4 LYMPHOCYTES DECREASED [None]
  - CEREBELLAR SYNDROME [None]
  - DYSARTHRIA [None]
  - GAIT DISTURBANCE [None]
  - HYPOREFLEXIA [None]
  - LYMPHOPENIA [None]
  - NEUROTOXICITY [None]
  - NORMOCHROMIC NORMOCYTIC ANAEMIA [None]
  - PNEUMONITIS [None]
  - VITAMIN B12 DECREASED [None]
